FAERS Safety Report 13626580 (Version 1)
Quarter: 2017Q2

REPORT INFORMATION
  Report Type: Spontaneous
  Country: US (occurrence: US)
  Receive Date: 20170607
  Receipt Date: 20170607
  Transmission Date: 20170830
  Serious: Yes (Other)
  Sender: FDA-Public Use
  Company Number: None

PATIENT
  Age: 34 Year
  Sex: Female
  Weight: 66.15 kg

DRUGS (1)
  1. BUPROPION XL [Suspect]
     Active Substance: BUPROPION
     Indication: AFFECTIVE DISORDER
     Route: 048
     Dates: start: 20170507, end: 20170521

REACTIONS (5)
  - Mood altered [None]
  - Product substitution issue [None]
  - Drug ineffective [None]
  - Condition aggravated [None]
  - Product formulation issue [None]

NARRATIVE: CASE EVENT DATE: 20170515
